FAERS Safety Report 6203496-8 (Version None)
Quarter: 2009Q2

REPORT INFORMATION
  Report Type: 
  Country: None (occurrence: None)
  Receive Date: 20090521
  Receipt Date: 20090520
  Transmission Date: 20091009
  Serious: Yes (Hospitalization)
  Sender: FDA-Public Use
  Company Number: WWISSUE-296

PATIENT

DRUGS (1)
  1. LITHIUM CARBONATE [Suspect]
     Dates: start: 19990101, end: 20090101

REACTIONS (2)
  - DRUG LEVEL INCREASED [None]
  - FALL [None]
